FAERS Safety Report 11463411 (Version 1)
Quarter: 2015Q3

REPORT INFORMATION
  Report Type: Spontaneous
  Country: US (occurrence: US)
  Receive Date: 20150831
  Receipt Date: 20150831
  Transmission Date: 20151125
  Serious: No
  Sender: FDA-Public Use
  Company Number: US-ELI_LILLY_AND_COMPANY-US201103002603

PATIENT
  Sex: Male

DRUGS (3)
  1. CYMBALTA [Suspect]
     Active Substance: DULOXETINE HYDROCHLORIDE
     Dosage: UNK, UNKNOWN
  2. CYMBALTA [Suspect]
     Active Substance: DULOXETINE HYDROCHLORIDE
     Indication: BACK PAIN
     Dosage: 60 D/F, UNK
  3. LYRICA [Concomitant]
     Active Substance: PREGABALIN
     Indication: PAIN

REACTIONS (3)
  - Feeling abnormal [Recovering/Resolving]
  - Irritability [Recovering/Resolving]
  - Drug withdrawal syndrome [Recovering/Resolving]
